FAERS Safety Report 4952205-9 (Version None)
Quarter: 2006Q1

REPORT INFORMATION
  Report Type: 
  Country: None (occurrence: None)
  Receive Date: 20060320
  Receipt Date: 20060306
  Transmission Date: 20060701
  Serious: Yes (Hospitalization)
  Sender: FDA-Public Use
  Company Number: 220001L06GBR

PATIENT
  Age: 36 Year
  Sex: Male

DRUGS (2)
  1. SOMATROPIN (SOMATROPIN) [Suspect]
  2. ANABOLIC STEROIDS [Concomitant]

REACTIONS (7)
  - DRUG ABUSER [None]
  - DYSPHONIA [None]
  - LARYNGEAL OEDEMA [None]
  - LARYNGOCELE [None]
  - NOCTURNAL DYSPNOEA [None]
  - STRIDOR [None]
  - VOCAL CORD DISORDER [None]
